FAERS Safety Report 10151674 (Version 3)
Quarter: 2014Q2

REPORT INFORMATION
  Report Type: Spontaneous
  Country: JP (occurrence: JP)
  Receive Date: 20140505
  Receipt Date: 20140529
  Transmission Date: 20141212
  Serious: Yes (Hospitalization)
  Sender: FDA-Public Use
  Company Number: JP-ROCHE-1392007

PATIENT
  Age: 75 Year
  Sex: Male
  Weight: 68 kg

DRUGS (7)
  1. MIRCERA [Suspect]
     Indication: NEPHROGENIC ANAEMIA
     Route: 042
     Dates: start: 20140303
  2. FAMOTIDINE [Concomitant]
     Indication: PROPHYLAXIS
     Route: 048
  3. MAINTATE [Concomitant]
     Indication: HYPERTENSION
     Route: 048
  4. ADALAT [Concomitant]
     Indication: HYPERTENSION
     Route: 048
  5. FLUCONAZOLE [Concomitant]
     Indication: PROPHYLAXIS
     Route: 048
     Dates: start: 20140423
  6. NEORAL [Concomitant]
     Indication: BONE MARROW FAILURE
     Route: 048
     Dates: start: 20140409
  7. ISONIAZID [Concomitant]
     Indication: PROPHYLAXIS
     Route: 048
     Dates: start: 20140430, end: 20140515

REACTIONS (1)
  - Haemoglobin decreased [Not Recovered/Not Resolved]
